FAERS Safety Report 20755903 (Version 5)
Quarter: 2022Q3

REPORT INFORMATION
  Report Type: Report from Study
  Country: US (occurrence: US)
  Receive Date: 20220427
  Receipt Date: 20220702
  Transmission Date: 20221027
  Serious: No
  Sender: FDA-Public Use
  Company Number: US-NOVARTISTESTPH-NVSC2022US096705

PATIENT
  Sex: Male

DRUGS (1)
  1. ENTRESTO [Suspect]
     Active Substance: SACUBITRIL\VALSARTAN
     Indication: Cardiac failure
     Dosage: UNK UNK, BID
     Route: 048

REACTIONS (6)
  - Blood pressure abnormal [Unknown]
  - Sneezing [Unknown]
  - Weight decreased [Unknown]
  - Heart rate decreased [Unknown]
  - Cough [Unknown]
  - Pruritus [Unknown]
